FAERS Safety Report 7793941 (Version 4)
Quarter: 2015Q1

REPORT INFORMATION
  Report Type: Spontaneous
  Country: US (occurrence: US)
  Receive Date: 20110201
  Receipt Date: 20150319
  Transmission Date: 20150721
  Serious: Yes (Hospitalization)
  Sender: FDA-Public Use
  Company Number: US-BAYER-2011-009641

PATIENT
  Age: 19 Year
  Sex: Female
  Weight: 53.06 kg

DRUGS (8)
  1. YASMIN [Suspect]
     Active Substance: DROSPIRENONE\ETHINYL ESTRADIOL
     Indication: CONTRACEPTION
     Dosage: UNK
     Dates: start: 20050112, end: 20050325
  2. ADDERALL XR [Concomitant]
     Active Substance: AMPHETAMINE ASPARTATE\AMPHETAMINE SULFATE\DEXTROAMPHETAMINE SACCHARATE\DEXTROAMPHETAMINE SULFATE
     Indication: ATTENTION DEFICIT/HYPERACTIVITY DISORDER
     Dosage: DAILY
     Dates: start: 2003, end: 2007
  3. POTASSIUM PHOSPHATE [Concomitant]
     Active Substance: POTASSIUM PHOSPHATE
     Dosage: 50 MEQ, UNK
     Route: 048
  4. TOPROL XL [Concomitant]
     Active Substance: METOPROLOL SUCCINATE
  5. LORAZEPAM. [Concomitant]
     Active Substance: LORAZEPAM
     Dosage: 1 MG, TAB
  6. MECLIZINE [Concomitant]
     Active Substance: MECLIZINE\MECLIZINE HYDROCHLORIDE
     Dosage: 25 MG; TAB
  7. WELLBUTRIN XL [Concomitant]
     Active Substance: BUPROPION HYDROCHLORIDE
     Dosage: 150 MG, TAB
  8. VIRAVAN DM [DEXTROMET HBR,MEPYRAM TANNATE,PHENYLEPHR TANNATE] [Concomitant]

REACTIONS (12)
  - Injury [None]
  - Hemiplegia [None]
  - Speech disorder [None]
  - Dyskinesia [None]
  - Dysarthria [None]
  - Hemiparesis [None]
  - Dysphonia [None]
  - Cerebellar infarction [None]
  - Pain [None]
  - Aphagia [None]
  - Muscular weakness [None]
  - Eye movement disorder [None]

NARRATIVE: CASE EVENT DATE: 20050325
